FAERS Safety Report 8256311-5 (Version None)
Quarter: 2012Q1

REPORT INFORMATION
  Report Type: 
  Country: None (occurrence: None)
  Receive Date: 20120330
  Receipt Date: 20120222
  Transmission Date: 20120608
  Serious: Yes (Other)
  Sender: FDA-Public Use
  Company Number: JP-2012-10667

PATIENT
  Age: 84 Year
  Sex: Male
  Weight: 43 kg

DRUGS (13)
  1. LOSARTAN POTASSIUM [Concomitant]
  2. LASIX [Concomitant]
  3. SAMSCA [Suspect]
     Indication: FLUID RETENTION
     Dosage: 3.75;11.25;15 MG, MILLIGRAM(S), QPM, ORAL
     Route: 048
     Dates: start: 20120118, end: 20120118
  4. LASIX [Concomitant]
  5. HUMULIN R (INSULIN HUMAN (GENETICAL RECOMBINATION) [Concomitant]
  6. ASPIRIN [Concomitant]
  7. HEPARIN AND PREPARATIONS (HEPARIN AND PREPARATIONS) [Concomitant]
  8. SOLITA-13 (POTASSIUM CHLORIDE, SODIUM CHLORIDE, SODIUIM LACTATE) [Concomitant]
  9. UNASYN [Concomitant]
  10. LASIX [Concomitant]
  11. HANP (CARPERITIDE (GENETICAL RECOMBINATION) [Concomitant]
  12. LACTATED RINGER (LACTATED RINGERS SOLUTION) [Concomitant]
  13. ALDACTONE [Concomitant]

REACTIONS (2)
  - BLOOD UREA INCREASED [None]
  - DYSPHAGIA [None]
